FAERS Safety Report 4759297-0 (Version None)
Quarter: 2005Q3

REPORT INFORMATION
  Report Type: 
  Country: None (occurrence: None)
  Receive Date: 20050831
  Receipt Date: 20050812
  Transmission Date: 20060218
  Serious: Yes (Death, Other)
  Sender: FDA-Public Use
  Company Number: EWC050744968

PATIENT
  Age: 54 Year
  Sex: Female

DRUGS (7)
  1. OLANZAPINE [Suspect]
     Indication: ANXIETY DISORDER
     Dosage: 5 MG DAY
     Dates: start: 20050221, end: 20050323
  2. OLANZAPINE [Suspect]
     Indication: PSYCHOTIC DISORDER
     Dosage: 5 MG DAY
     Dates: start: 20050221, end: 20050323
  3. ABILIFY [Concomitant]
  4. EDRONAX (REBOXETINE) [Concomitant]
  5. AMITRIPTYLINE HCL [Concomitant]
  6. FLURAZEPAM [Concomitant]
  7. XANAX [Concomitant]

REACTIONS (5)
  - BRADYCARDIA [None]
  - COMPLETED SUICIDE [None]
  - HYPERKALAEMIA [None]
  - HYPONATRAEMIA [None]
  - SUDDEN DEATH [None]
